FAERS Safety Report 8523340-3 (Version None)
Quarter: 2012Q3

REPORT INFORMATION
  Report Type: 
  Country: None (occurrence: None)
  Receive Date: 20120713
  Receipt Date: 20120713
  Transmission Date: 20120928
  Serious: Yes (Hospitalization)
  Sender: FDA-Public Use
  Company Number: None

PATIENT
  Age: 57 Year
  Sex: Female
  Weight: 95.5 kg

DRUGS (1)
  1. ARIPIPRAZOLE [Suspect]
     Dosage: 20 MG HS PO
     Route: 048
     Dates: start: 20110823, end: 20110923

REACTIONS (2)
  - FALL [None]
  - PARKINSONISM [None]
